FAERS Safety Report 18509705 (Version 3)
Quarter: 2020Q4

REPORT INFORMATION
  Report Type: Other
  Country: US (occurrence: US)
  Receive Date: 20201117
  Receipt Date: 20201228
  Transmission Date: 20210114
  Serious: Yes (Hospitalization, Other)
  Sender: FDA-Public Use
  Company Number: US-ROCHE-2527398

PATIENT
  Sex: Male
  Weight: 72.64 kg

DRUGS (13)
  1. OCREVUS [Suspect]
     Active Substance: OCRELIZUMAB
     Indication: RELAPSING MULTIPLE SCLEROSIS
     Route: 042
     Dates: start: 20180202
  2. OCREVUS [Suspect]
     Active Substance: OCRELIZUMAB
     Indication: MULTIPLE SCLEROSIS
     Route: 042
     Dates: start: 20180119
  3. OCREVUS [Suspect]
     Active Substance: OCRELIZUMAB
     Route: 042
     Dates: start: 20180806
  4. OCREVUS [Suspect]
     Active Substance: OCRELIZUMAB
     Route: 042
     Dates: start: 20180824
  5. TYSABRI [Concomitant]
     Active Substance: NATALIZUMAB
  6. ELIQUIS [Concomitant]
     Active Substance: APIXABAN
  7. OCREVUS [Suspect]
     Active Substance: OCRELIZUMAB
     Route: 042
     Dates: start: 20190206
  8. OCREVUS [Suspect]
     Active Substance: OCRELIZUMAB
     Route: 042
     Dates: start: 20190809
  9. TOLTERODINE [Concomitant]
     Active Substance: TOLTERODINE
     Indication: BLADDER SPASM
     Dosage: FOR BLADDER CONTROL
  10. OCREVUS [Suspect]
     Active Substance: OCRELIZUMAB
     Route: 042
     Dates: start: 20180119
  11. COPAXONE [Concomitant]
     Active Substance: GLATIRAMER ACETATE
  12. OCREVUS [Suspect]
     Active Substance: OCRELIZUMAB
     Indication: PRIMARY PROGRESSIVE MULTIPLE SCLEROSIS
     Dosage: FOLLOWED BY 600 MG, ONCE IN 6 MONTHS
     Route: 042
     Dates: start: 2018
  13. OCREVUS [Suspect]
     Active Substance: OCRELIZUMAB
     Route: 042
     Dates: start: 202002

REACTIONS (6)
  - Multiple sclerosis relapse [Recovered/Resolved]
  - Fall [Unknown]
  - Mobility decreased [Unknown]
  - Drug ineffective [Unknown]
  - Thrombosis [Recovered/Resolved]
  - Tremor [Not Recovered/Not Resolved]
